FAERS Safety Report 14695559 (Version 1)
Quarter: 2018Q1

REPORT INFORMATION
  Report Type: Spontaneous
  Country: US (occurrence: US)
  Receive Date: 20180327
  Receipt Date: 20180327
  Transmission Date: 20180509
  Serious: Yes (Hospitalization)
  Sender: FDA-Public Use
  Company Number: None

PATIENT
  Age: 74 Year
  Sex: Male

DRUGS (9)
  1. ASPIRIN. [Concomitant]
     Active Substance: ASPIRIN
  2. FLUTICASONE. [Concomitant]
     Active Substance: FLUTICASONE
  3. DIGOXIN. [Suspect]
     Active Substance: DIGOXIN
     Indication: CARDIAC FAILURE
     Route: 048
     Dates: start: 19990101, end: 20180110
  4. ATORVASTATIN [Concomitant]
     Active Substance: ATORVASTATIN
  5. ALBUTEROL. [Concomitant]
     Active Substance: ALBUTEROL
  6. LISINOPRIL. [Concomitant]
     Active Substance: LISINOPRIL
  7. CARVEDILOL. [Concomitant]
     Active Substance: CARVEDILOL
  8. MULTIVITAMIN [Concomitant]
     Active Substance: VITAMINS
  9. OMEGA 3 FATTY ACIDS [Concomitant]
     Active Substance: OMEGA-3 FATTY ACIDS

REACTIONS (1)
  - Toxicity to various agents [None]

NARRATIVE: CASE EVENT DATE: 20180110
